FAERS Safety Report 10235197 (Version 4)
Quarter: 2014Q3

REPORT INFORMATION
  Report Type: Spontaneous
  Country: GB (occurrence: GB)
  Receive Date: 20140613
  Receipt Date: 20140729
  Transmission Date: 20150326
  Serious: Yes (Death, Life-Threatening, Hospitalization, Other)
  Sender: FDA-Public Use
  Company Number: GB-TEVA-486834ISR

PATIENT
  Age: 77 Year
  Sex: Female
  Weight: 89 kg

DRUGS (16)
  1. SENNA [Concomitant]
     Active Substance: SENNA LEAF\SENNOSIDES\SENNOSIDES A AND B
  2. CLOPIDOGREL [Concomitant]
     Active Substance: CLOPIDOGREL BISULFATE
  3. TICAGRELOR [Suspect]
     Active Substance: TICAGRELOR
     Indication: THROMBOSIS IN DEVICE
     Dosage: 180 MILLIGRAM DAILY;
     Route: 048
     Dates: start: 20131005, end: 20131125
  4. LACTULOSE. [Concomitant]
     Active Substance: LACTULOSE
  5. MOMETASONE [Concomitant]
     Active Substance: MOMETASONE
     Route: 045
  6. ASPIRIN. [Concomitant]
     Active Substance: ASPIRIN
     Dates: end: 20131125
  7. LANSOPRAZOLE. [Suspect]
     Active Substance: LANSOPRAZOLE
     Indication: DYSPEPSIA
     Dosage: 30 MILLIGRAM DAILY;
     Route: 048
     Dates: start: 20131025, end: 20131125
  8. FERROUS FUMARATE [Suspect]
     Active Substance: FERROUS FUMARATE
     Indication: IRON DEFICIENCY
     Route: 048
     Dates: start: 20131025, end: 20131125
  9. IVABRADINE HYDROCHLORIDE [Suspect]
     Active Substance: IVABRADINE HYDROCHLORIDE
     Indication: MYOCARDIAL INFARCTION
     Dosage: 10 MILLIGRAM DAILY;
     Route: 048
     Dates: start: 20130930, end: 20131125
  10. PARACETAMOL [Concomitant]
     Active Substance: ACETAMINOPHEN
     Route: 001
  11. GLYCERIN. [Concomitant]
     Active Substance: GLYCERIN
  12. SERETIDE [Concomitant]
     Active Substance: FLUTICASONE FUROATE\SALMETEROL XINAFOATE
     Route: 055
  13. RAMIPRIL. [Suspect]
     Active Substance: RAMIPRIL
     Indication: MYOCARDIAL INFARCTION
     Dosage: 2.5 MILLIGRAM DAILY;
     Route: 048
     Dates: start: 20130930, end: 20131125
  14. ATORVASTATIN [Concomitant]
     Active Substance: ATORVASTATIN
     Dates: end: 20131125
  15. GTN [Concomitant]
     Active Substance: NITROGLYCERIN
  16. SALBUTAMOL [Concomitant]
     Active Substance: ALBUTEROL
     Route: 055

REACTIONS (2)
  - Death [Fatal]
  - Agranulocytosis [Recovered/Resolved]

NARRATIVE: CASE EVENT DATE: 20131125
